FAERS Safety Report 12730053 (Version 3)
Quarter: 2016Q4

REPORT INFORMATION
  Report Type: Spontaneous
  Country: CN (occurrence: CN)
  Receive Date: 20160909
  Receipt Date: 20161101
  Transmission Date: 20170207
  Serious: Yes (Other)
  Sender: FDA-Public Use
  Company Number: CN-ABBVIE-16P-035-1723639-00

PATIENT
  Age: 61 Year
  Sex: Male

DRUGS (1)
  1. DEPAKINE CHRONO [Suspect]
     Active Substance: VALPROATE SODIUM
     Indication: EPILEPSY
     Dosage: TABLET, EXTENDED RELEASE
     Route: 048
     Dates: start: 2014

REACTIONS (4)
  - Seizure [Recovered/Resolved]
  - Muscle spasms [Unknown]
  - Drug ineffective [Recovered/Resolved]
  - Medication residue present [Unknown]

NARRATIVE: CASE EVENT DATE: 20160904
